FAERS Safety Report 18444519 (Version 3)
Quarter: 2020Q4

REPORT INFORMATION
  Report Type: Spontaneous
  Country: US (occurrence: US)
  Receive Date: 20201030
  Receipt Date: 20201122
  Transmission Date: 20210114
  Serious: No
  Sender: FDA-Public Use
  Company Number: US-JNJFOC-20201042440

PATIENT

DRUGS (1)
  1. ROGAINE [Suspect]
     Active Substance: MINOXIDIL
     Indication: PRODUCT USED FOR UNKNOWN INDICATION
     Dosage: SLIGHTLY MORE DOSE THAN SUGGESTED / SLIGHTLY MORE THAN THE HALF CAP DOSAGE
     Route: 065

REACTIONS (1)
  - Overdose [Unknown]
